FAERS Safety Report 14335902 (Version 1)
Quarter: 2017Q4

REPORT INFORMATION
  Report Type: Spontaneous
  Country: US (occurrence: US)
  Receive Date: 20171229
  Receipt Date: 20171229
  Transmission Date: 20180321
  Serious: No
  Sender: FDA-Public Use
  Company Number: PHEH2017US041813

PATIENT
  Sex: Female

DRUGS (1)
  1. CLOTRIMAZOLE AND BETAMETHASONE [Suspect]
     Active Substance: BETAMETHASONE\CLOTRIMAZOLE
     Indication: TINEA INFECTION
     Route: 065

REACTIONS (4)
  - Drug ineffective [Unknown]
  - Rash erythematous [Unknown]
  - Rash vesicular [Unknown]
  - Condition aggravated [Unknown]
